FAERS Safety Report 9551272 (Version 1)
Quarter: 2013Q3

REPORT INFORMATION
  Report Type: Spontaneous
  Country: US (occurrence: US)
  Receive Date: 20130925
  Receipt Date: 20130925
  Transmission Date: 20140515
  Serious: Yes (Other)
  Sender: FDA-Public Use
  Company Number: US-INDICUS PHARMA-000105

PATIENT
  Age: 43 Year
  Sex: Male

DRUGS (1)
  1. DONEPEZIL [Suspect]
     Indication: FRONTOTEMPORAL DEMENTIA
     Dosage: DONEPEZIL DOSE WAS INCREASED?TO 10 MG DAILY

REACTIONS (1)
  - Delirium [Recovered/Resolved]
